FAERS Safety Report 8851334 (Version 1)
Quarter: 2012Q4

REPORT INFORMATION
  Report Type: 
  Country: US (occurrence: US)
  Receive Date: 20121022
  Receipt Date: 20121022
  Transmission Date: 20130627
  Serious: No
  Sender: FDA-Public Use
  Company Number: US-009507513-1210USA004239

PATIENT
  Sex: Male

DRUGS (3)
  1. PEGINTRON [Suspect]
     Indication: HEPATITIS C
     Dosage: UNK
     Dates: start: 20111104, end: 20120901
  2. REBETOL [Suspect]
     Indication: HEPATITIS C
     Dosage: UNK
     Route: 048
     Dates: start: 20111104, end: 20120901
  3. TELAPREVIR [Concomitant]

REACTIONS (10)
  - White blood cell count abnormal [Unknown]
  - Anaemia [Unknown]
  - Eating disorder [Unknown]
  - Weight decreased [Unknown]
  - Nausea [Unknown]
  - Ammonia increased [Unknown]
  - Fatigue [Unknown]
  - Ageusia [Unknown]
  - Infusion site reaction [Recovered/Resolved]
  - Rash [Recovering/Resolving]
